FAERS Safety Report 10262416 (Version 4)
Quarter: 2014Q3

REPORT INFORMATION
  Report Type: Spontaneous
  Country: JP (occurrence: JP)
  Receive Date: 20140626
  Receipt Date: 20140815
  Transmission Date: 20150326
  Serious: Yes (Death, Life-Threatening, Hospitalization)
  Sender: FDA-Public Use
  Company Number: JP-BAYER-2014-085048

PATIENT
  Age: 56 Year
  Sex: Male
  Weight: 65 kg

DRUGS (6)
  1. STIVARGA [Suspect]
     Active Substance: REGORAFENIB
     Indication: COLON CANCER
     Dosage: 160 MG, QD
     Route: 048
     Dates: start: 20140507, end: 20140527
  2. LUPRAC [Concomitant]
     Active Substance: TORSEMIDE
     Indication: RECTAL CANCER
     Dosage: DAILY DOSE 4 MG
     Route: 048
     Dates: start: 20140531
  3. ROHYPNOL [Concomitant]
     Active Substance: FLUNITRAZEPAM
     Dosage: DAILY DOSE 1 MG
     Route: 048
     Dates: start: 20140528
  4. DECADRON [Concomitant]
     Active Substance: DEXAMETHASONE
     Indication: RECTAL CANCER
     Dosage: DAILY DOSE 2 MG
     Route: 048
     Dates: start: 20140430
  5. CALONAL [Concomitant]
     Active Substance: ACETAMINOPHEN
     Indication: RECTAL CANCER
     Dosage: DAILY DOSE 800 MG
     Route: 048
     Dates: start: 20140430
  6. AMOBAN [Concomitant]
     Active Substance: ZOPICLONE
     Dosage: DAILY DOSE 7.5 MG
     Route: 048
     Dates: start: 20140514

REACTIONS (8)
  - Anaemia [Not Recovered/Not Resolved]
  - Malaise [Not Recovered/Not Resolved]
  - Stomatitis [Recovering/Resolving]
  - Diarrhoea [Recovering/Resolving]
  - Melaena [Not Recovered/Not Resolved]
  - Hepatic failure [Fatal]
  - Oedema peripheral [Not Recovered/Not Resolved]
  - Gastrointestinal haemorrhage [Not Recovered/Not Resolved]

NARRATIVE: CASE EVENT DATE: 20140514
